FAERS Safety Report 14227691 (Version 1)
Quarter: 2017Q4

REPORT INFORMATION
  Report Type: Other
  Country: US (occurrence: US)
  Receive Date: 20171127
  Receipt Date: 20171127
  Transmission Date: 20180321
  Serious: No
  Sender: FDA-Public Use
  Company Number: US-ANTARES PHARMA, INC.-2017-REG-MX-0349

PATIENT

DRUGS (1)
  1. OTREXUP [Suspect]
     Active Substance: METHOTREXATE
     Indication: PRODUCT USED FOR UNKNOWN INDICATION
     Dosage: 10 MG/0.4ML, QWK
     Route: 058

REACTIONS (2)
  - Eye swelling [Unknown]
  - Drug ineffective [Unknown]
